FAERS Safety Report 11752336 (Version 1)
Quarter: 2015Q4

REPORT INFORMATION
  Report Type: Other
  Country: KR (occurrence: KR)
  Receive Date: 20151118
  Receipt Date: 20151118
  Transmission Date: 20160304
  Serious: Yes (Other)
  Sender: FDA-Public Use
  Company Number: KR-CONCORDIA PHARMACEUTICALS INC.-CO-OR-KR-2015-017

PATIENT
  Age: 70 Year
  Sex: Male

DRUGS (3)
  1. PREDNISOLONE. [Suspect]
     Active Substance: PREDNISOLONE
     Indication: ADRENAL INSUFFICIENCY
     Route: 065
  2. PREDNISOLONE. [Suspect]
     Active Substance: PREDNISOLONE
     Route: 065
  3. PREDNISOLONE. [Suspect]
     Active Substance: PREDNISOLONE
     Route: 065

REACTIONS (3)
  - Adrenal insufficiency [None]
  - Cellulitis [None]
  - Kaposi^s sarcoma [Recovered/Resolved]
